FAERS Safety Report 8145124-0 (Version None)
Quarter: 2012Q1

REPORT INFORMATION
  Report Type: 
  Country: None (occurrence: None)
  Receive Date: 20120217
  Receipt Date: 20120214
  Transmission Date: 20120608
  Serious: Yes (Death)
  Sender: FDA-Public Use
  Company Number: PHHY2012BR012963

PATIENT
  Sex: Female

DRUGS (2)
  1. EXELON [Suspect]
     Dosage: 13.3\24H (27MG/15CM2)
     Route: 062
  2. QUETIAPINE FUMARATE [Concomitant]
     Dosage: 100 MG, UNK

REACTIONS (1)
  - DEATH [None]
